FAERS Safety Report 10094785 (Version 1)
Quarter: 2014Q2

REPORT INFORMATION
  Report Type: Spontaneous
  Country: US (occurrence: US)
  Receive Date: 20140422
  Receipt Date: 20140422
  Transmission Date: 20141212
  Serious: No
  Sender: FDA-Public Use
  Company Number: US-B.I. PHARMACEUTICALS,INC./RIDGEFIELD-2014-BI-16530BP

PATIENT
  Sex: Male

DRUGS (11)
  1. PRADAXA [Suspect]
     Indication: ATRIAL FIBRILLATION
     Dosage: 300 MG
     Route: 048
  2. PROBIOTICS [Concomitant]
     Indication: SUPPLEMENTATION THERAPY
     Route: 048
  3. LISINOPRIL [Concomitant]
     Indication: HYPERTENSION
     Dosage: 2.5 MG
     Route: 048
  4. BETA GLUTEN [Concomitant]
     Indication: SUPPLEMENTATION THERAPY
     Route: 048
  5. FLOMAX [Concomitant]
     Indication: PROSTATOMEGALY
     Dosage: 4 MG
     Route: 048
     Dates: start: 20140401
  6. VITAMIN D WITH CALCIUM [Concomitant]
     Indication: SUPPLEMENTATION THERAPY
     Route: 048
  7. PRILOSEC [Concomitant]
     Indication: GASTROOESOPHAGEAL REFLUX DISEASE
     Dosage: 20 MG
     Route: 048
  8. VITAMIN CO Q 10 [Concomitant]
     Indication: SUPPLEMENTATION THERAPY
     Route: 048
  9. LUTEN [Concomitant]
     Indication: SUPPLEMENTATION THERAPY
     Route: 048
  10. CENTRUM SILVER [Concomitant]
     Indication: SUPPLEMENTATION THERAPY
     Route: 048
  11. FLUCONAZOLE [Concomitant]
     Indication: FUNGAL INFECTION
     Route: 061

REACTIONS (1)
  - Haemorrhoidal haemorrhage [Not Recovered/Not Resolved]
